FAERS Safety Report 19872721 (Version 1)
Quarter: 2021Q3

REPORT INFORMATION
  Report Type: Report from Study
  Country: US (occurrence: US)
  Receive Date: 20210923
  Receipt Date: 20210923
  Transmission Date: 20211014
  Serious: No
  Sender: FDA-Public Use
  Company Number: US-IPSEN BIOPHARMACEUTICALS, INC.-2021-22712

PATIENT
  Sex: Female

DRUGS (2)
  1. METFORMIN [Concomitant]
     Active Substance: METFORMIN HYDROCHLORIDE
     Indication: TYPE 2 DIABETES MELLITUS
  2. SOMATULINE DEPOT [Suspect]
     Active Substance: LANREOTIDE ACETATE
     Indication: CARCINOID TUMOUR OF THE GASTROINTESTINAL TRACT
     Dosage: 120 MG/ 0.5 ML
     Route: 058
     Dates: start: 2018

REACTIONS (6)
  - Alopecia [Recovering/Resolving]
  - Blood glucose increased [Recovering/Resolving]
  - Insomnia [Recovering/Resolving]
  - Dry skin [Recovering/Resolving]
  - Onychoclasis [Recovering/Resolving]
  - Dysphonia [Recovering/Resolving]
